FAERS Safety Report 12173188 (Version 1)
Quarter: 2016Q1

REPORT INFORMATION
  Report Type: Spontaneous
  Country: CA (occurrence: CA)
  Receive Date: 20160311
  Receipt Date: 20160311
  Transmission Date: 20160526
  Serious: Yes (Other)
  Sender: FDA-Public Use
  Company Number: CA-TEVA-641847USA

PATIENT
  Age: 42 Year
  Sex: Female
  Weight: 74.91 kg

DRUGS (1)
  1. PLAN B [Suspect]
     Active Substance: LEVONORGESTREL
     Indication: POST COITAL CONTRACEPTION
     Dosage: 2 TABS TAKEN TOGETHER
     Route: 065

REACTIONS (1)
  - Haemorrhage [Unknown]
